FAERS Safety Report 10041046 (Version 2)
Quarter: 2014Q2

REPORT INFORMATION
  Report Type: Spontaneous
  Country: FR (occurrence: FR)
  Receive Date: 20140327
  Receipt Date: 20140409
  Transmission Date: 20141212
  Serious: Yes (Hospitalization)
  Sender: FDA-Public Use
  Company Number: FR-009507513-1403FRA011000

PATIENT
  Age: 22 Year
  Sex: Male

DRUGS (6)
  1. DIPROSTENE [Suspect]
     Dosage: 1 DF, ONCE
     Route: 014
     Dates: start: 20140210, end: 20140210
  2. LAMISIL (TERBINAFINE) [Suspect]
     Dosage: 1 DF, QD
     Dates: start: 20140130, end: 20140217
  3. CARTREX [Suspect]
     Dosage: UNK
     Route: 048
     Dates: start: 20140205, end: 20140217
  4. TOPALGIC (SUPROFEN) [Suspect]
     Dosage: UNK
     Dates: start: 20140205, end: 20140217
  5. MOPRAL (OMEPRAZOLE SODIUM) [Suspect]
     Dosage: UNK
     Dates: start: 20140210, end: 20140217
  6. KETOPROFEN [Suspect]
     Dosage: UNK
     Dates: start: 20140210, end: 20140217

REACTIONS (1)
  - Acute generalised exanthematous pustulosis [Recovered/Resolved]
